FAERS Safety Report 23756918 (Version 2)
Quarter: 2024Q2

REPORT INFORMATION
  Report Type: Spontaneous
  Country: US (occurrence: US)
  Receive Date: 20240418
  Receipt Date: 20240607
  Transmission Date: 20240715
  Serious: Yes (Death, Other)
  Sender: FDA-Public Use
  Company Number: US-OTSUKA-2024_011092

PATIENT
  Sex: Male
  Weight: 2.13 kg

DRUGS (12)
  1. BUSULFAN [Suspect]
     Active Substance: BUSULFAN
     Indication: Bone marrow conditioning regimen
     Dosage: (TARGET AUC OF 40-60 MG 3 H/L DIVIDED OVER 4 DAYS ADMINISTERED EVERY 6 HOURS FROM DAYS -5 TO -2)
     Route: 065
     Dates: start: 20180329
  2. BUSULFAN [Suspect]
     Active Substance: BUSULFAN
     Indication: Allogenic stem cell transplantation
  3. FLUDARABINE [Suspect]
     Active Substance: FLUDARABINE PHOSPHATE
     Indication: Bone marrow conditioning regimen
     Dosage: 30 MG/M2/D ON DAYS -8 TO -3
     Route: 065
     Dates: start: 20180326
  4. FLUDARABINE [Suspect]
     Active Substance: FLUDARABINE PHOSPHATE
     Indication: Allogenic stem cell transplantation
  5. THYMOCYTE IMMUNE GLOBULIN NOS [Suspect]
     Active Substance: THYMOCYTE IMMUNE GLOBULIN NOS
     Indication: Bone marrow conditioning regimen
     Dosage: 30 MG/KG/D ON DAYS -5 TO -2
     Route: 065
     Dates: start: 20180329
  6. THYMOCYTE IMMUNE GLOBULIN NOS [Suspect]
     Active Substance: THYMOCYTE IMMUNE GLOBULIN NOS
     Indication: Allogenic stem cell transplantation
  7. MYCOPHENOLATE MOFETIL [Suspect]
     Active Substance: MYCOPHENOLATE MOFETIL
     Indication: Prophylaxis against graft versus host disease
     Dosage: UNK
     Route: 065
     Dates: start: 20171020
  8. TACROLIMUS [Suspect]
     Active Substance: TACROLIMUS
     Indication: Prophylaxis against graft versus host disease
     Dosage: UNK
     Route: 065
     Dates: start: 20180402
  9. PENTAMIDINE [Suspect]
     Active Substance: PENTAMIDINE
     Indication: Myelosuppression
     Dosage: UNK UNK, QM
     Route: 065
     Dates: start: 20171020
  10. ACYCLOVIR [Suspect]
     Active Substance: ACYCLOVIR
     Indication: Prophylaxis
     Dosage: UNK
     Route: 065
  11. FLUCONAZOLE [Suspect]
     Active Substance: FLUCONAZOLE
     Indication: Prophylaxis
     Dosage: UNK
     Route: 065
     Dates: start: 20171020
  12. HUMAN IMMUNOGLOBULIN G [Suspect]
     Active Substance: HUMAN IMMUNOGLOBULIN G
     Indication: Prophylaxis
     Dosage: UNK, MONTHLY
     Route: 042

REACTIONS (14)
  - Haemorrhage intracranial [Fatal]
  - Acute kidney injury [Unknown]
  - Pulmonary oedema [Unknown]
  - Ascites [Unknown]
  - Bradycardia [Unknown]
  - Encephalopathy [Unknown]
  - Neutropenia [Unknown]
  - Hypoxia [Unknown]
  - Hyperferritinaemia [Unknown]
  - Eye movement disorder [Unknown]
  - Dyskinesia [Unknown]
  - Hepatic enzyme increased [Unknown]
  - Hypertension [Unknown]
  - Pyrexia [Unknown]
